FAERS Safety Report 6046325-8 (Version None)
Quarter: 2009Q1

REPORT INFORMATION
  Report Type: 
  Country: None (occurrence: None)
  Receive Date: 20090121
  Receipt Date: 20090121
  Transmission Date: 20090719
  Serious: Yes (Other)
  Sender: FDA-Public Use
  Company Number: None

PATIENT
  Age: 28 Year
  Sex: Female
  Weight: 54.4316 kg

DRUGS (1)
  1. MIRENA [Suspect]
     Indication: CONTRACEPTION
     Dosage: 2 YEARS INSERTED

REACTIONS (11)
  - ACNE [None]
  - CERVICAL DYSPLASIA [None]
  - LETHARGY [None]
  - MALAISE [None]
  - MIGRAINE [None]
  - MOOD SWINGS [None]
  - PELVIC INFLAMMATORY DISEASE [None]
  - PRECANCEROUS CELLS PRESENT [None]
  - URINARY TRACT INFECTION [None]
  - VAGINITIS BACTERIAL [None]
  - WAIST CIRCUMFERENCE INCREASED [None]
